FAERS Safety Report 13394644 (Version 1)
Quarter: 2017Q2

REPORT INFORMATION
  Report Type: Spontaneous
  Country: US (occurrence: US)
  Receive Date: 20170403
  Receipt Date: 20170403
  Transmission Date: 20170830
  Serious: No
  Sender: FDA-Public Use
  Company Number: US-009507513-1703USA005714

PATIENT
  Age: 78 Year
  Sex: Female

DRUGS (4)
  1. EZETIMIBE. [Suspect]
     Active Substance: EZETIMIBE
     Dosage: UNK
     Dates: start: 2017, end: 2017
  2. LISINOPRIL. [Concomitant]
     Active Substance: LISINOPRIL
  3. ZETIA [Suspect]
     Active Substance: EZETIMIBE
     Dosage: 10 MG / ONCE DAILY
     Route: 048
     Dates: start: 20170308, end: 20170308
  4. ZETIA [Suspect]
     Active Substance: EZETIMIBE
     Indication: BLOOD CHOLESTEROL ABNORMAL
     Dosage: 10 MG / ONCE DAILY
     Route: 048
     Dates: start: 20161201, end: 201701

REACTIONS (8)
  - Neck pain [Recovered/Resolved]
  - Headache [Recovered/Resolved]
  - Headache [Recovered/Resolved]
  - Insomnia [Recovered/Resolved]
  - Neck pain [Recovered/Resolved]
  - Hallucination [Recovered/Resolved]
  - Palpitations [Recovered/Resolved]
  - Hallucination [Recovered/Resolved]

NARRATIVE: CASE EVENT DATE: 20161201
